FAERS Safety Report 25628733 (Version 1)
Quarter: 2025Q3

REPORT INFORMATION
  Report Type: Spontaneous
  Country: US (occurrence: US)
  Receive Date: 20250731
  Receipt Date: 20250731
  Transmission Date: 20251021
  Serious: No
  Sender: Tarsus Pharmaceuticals
  Company Number: US-TARSUS PHARMACEUTICALS-TSP-US-2025-000583

PATIENT

DRUGS (3)
  1. XDEMVY [Suspect]
     Active Substance: LOTILANER
     Indication: Ocular demodicosis
     Dosage: 1 DROP, BID (ONE DROP INTO AFFECTED EYES TWICE DAILY EVERY 12 HOURS MAX DAILY DOSE: 2)
     Route: 047
     Dates: start: 20250607
  2. FLOMAX [Concomitant]
     Active Substance: TAMSULOSIN HYDROCHLORIDE
     Indication: Product used for unknown indication
     Route: 065
  3. KEPPRA [Concomitant]
     Active Substance: LEVETIRACETAM
     Indication: Product used for unknown indication
     Route: 065

REACTIONS (2)
  - Therapeutic product effect variable [Unknown]
  - Wrong technique in product usage process [Unknown]

NARRATIVE: CASE EVENT DATE: 20250601
